FAERS Safety Report 8176078-9 (Version None)
Quarter: 2012Q1

REPORT INFORMATION
  Report Type: 
  Country: None (occurrence: None)
  Receive Date: 20120301
  Receipt Date: 20120222
  Transmission Date: 20120608
  Serious: Yes (Hospitalization)
  Sender: FDA-Public Use
  Company Number: US-US-EMD SERONO, INC.-7115040

PATIENT
  Sex: Female

DRUGS (1)
  1. REBIF [Suspect]
     Indication: MULTIPLE SCLEROSIS
     Route: 058
     Dates: start: 20081218

REACTIONS (6)
  - MUSCULAR WEAKNESS [None]
  - VENTRICULAR TACHYCARDIA [None]
  - GASTROINTESTINAL ULCER [None]
  - REFLEXES ABNORMAL [None]
  - NAUSEA [None]
  - MUSCLE SPASMS [None]
